FAERS Safety Report 7689715-X (Version None)
Quarter: 2011Q3

REPORT INFORMATION
  Report Type: 
  Country: None (occurrence: None)
  Receive Date: 20110817
  Receipt Date: 20110812
  Transmission Date: 20111222
  Serious: Yes (Death, Life-Threatening, Hospitalization)
  Sender: FDA-Public Use
  Company Number: DE-ABBOTT-11P-062-0846462-00

PATIENT
  Age: 66 Year
  Sex: Male

DRUGS (14)
  1. OXAZEPAM [Suspect]
     Route: 048
     Dates: start: 20051011, end: 20051016
  2. THEOPHYLLINE [Concomitant]
     Indication: PRODUCT USED FOR UNKNOWN INDICATION
  3. PIPAMPERONE [Suspect]
     Route: 048
     Dates: start: 20050927
  4. OXAZEPAM [Suspect]
     Indication: PRODUCT USED FOR UNKNOWN INDICATION
     Route: 048
     Dates: end: 20051010
  5. SEROQUEL [Suspect]
     Indication: PRODUCT USED FOR UNKNOWN INDICATION
     Route: 048
     Dates: start: 20050927, end: 20051013
  6. FUROSEMIDE [Concomitant]
     Indication: PRODUCT USED FOR UNKNOWN INDICATION
     Dates: end: 20051018
  7. THEOPHYLLINE [Concomitant]
     Dates: start: 20051011
  8. VALPROIC ACID [Suspect]
     Indication: PRODUCT USED FOR UNKNOWN INDICATION
     Route: 048
     Dates: end: 20051012
  9. VALPROIC ACID [Suspect]
     Route: 048
     Dates: start: 20051013
  10. SEROQUEL [Suspect]
     Route: 048
     Dates: start: 20051014
  11. LANITOP [Concomitant]
     Indication: PRODUCT USED FOR UNKNOWN INDICATION
     Dates: end: 20051018
  12. PHENYTOIN [Suspect]
     Indication: PRODUCT USED FOR UNKNOWN INDICATION
     Route: 048
  13. PIPAMPERONE [Suspect]
     Indication: PRODUCT USED FOR UNKNOWN INDICATION
     Route: 048
     Dates: end: 20050926
  14. OXAZEPAM [Suspect]
     Route: 048
     Dates: start: 20051017

REACTIONS (2)
  - BODY TEMPERATURE INCREASED [None]
  - PNEUMONIA [None]
